FAERS Safety Report 13188207 (Version 3)
Quarter: 2018Q3

REPORT INFORMATION
  Report Type: Spontaneous
  Country: GB (occurrence: GB)
  Receive Date: 20170206
  Receipt Date: 20180807
  Transmission Date: 20181010
  Serious: Yes (Other)
  Sender: FDA-Public Use
  Company Number: GB-DRREDDYS-USA/UKI/17/0086818

PATIENT
  Age: 63 Year
  Sex: Female

DRUGS (1)
  1. SUMATRIPTAN. [Suspect]
     Active Substance: SUMATRIPTAN
     Indication: MIGRAINE
     Route: 048

REACTIONS (1)
  - IIIrd nerve paresis [Recovered/Resolved]
